FAERS Safety Report 7602542-4 (Version None)
Quarter: 2011Q3

REPORT INFORMATION
  Report Type: 
  Country: None (occurrence: None)
  Receive Date: 20110701
  Receipt Date: 20091220
  Transmission Date: 20111222
  Serious: Yes (Other)
  Sender: FDA-Public Use
  Company Number: SIM_00015_2011

PATIENT
  Sex: Female

DRUGS (2)
  1. ALLERGY EYE RELIEF (HOMEOPATHIC) [Suspect]
     Indication: DRY EYE
     Dosage: (DF OPHTHALMIC)
     Route: 047
     Dates: start: 20090101, end: 20090101
  2. ALLERGY EYE RELIEF (HOMEOPATHIC) [Suspect]
     Indication: OCULAR HYPERAEMIA
     Dosage: (DF OPHTHALMIC)
     Route: 047
     Dates: start: 20090101, end: 20090101

REACTIONS (7)
  - DRUG HYPERSENSITIVITY [None]
  - THYROID DISORDER [None]
  - DRY SKIN [None]
  - PERIORBITAL OEDEMA [None]
  - EYE PRURITUS [None]
  - ERYTHEMA OF EYELID [None]
  - SKIN EXFOLIATION [None]
